FAERS Safety Report 26218832 (Version 1)
Quarter: 2025Q4

REPORT INFORMATION
  Report Type: Spontaneous
  Country: US (occurrence: US)
  Receive Date: 20251231
  Receipt Date: 20251231
  Transmission Date: 20260118
  Serious: No
  Sender: PFIZER
  Company Number: US-PFIZER INC-PV202500150902

PATIENT

DRUGS (1)
  1. METHOTREXATE SODIUM [Suspect]
     Active Substance: METHOTREXATE SODIUM
     Dosage: UNK, 2 CONSECUTIVE DOSES
     Dates: start: 202404

REACTIONS (4)
  - Pyrexia [Unknown]
  - Pain [Unknown]
  - Vomiting [Unknown]
  - White blood cell count increased [Unknown]
